FAERS Safety Report 20197425 (Version 1)
Quarter: 2021Q4

REPORT INFORMATION
  Report Type: Spontaneous
  Country: US (occurrence: US)
  Receive Date: 20211217
  Receipt Date: 20211217
  Transmission Date: 20220303
  Serious: Yes (Other)
  Sender: FDA-Public Use
  Company Number: US-PACIRA-202000506

PATIENT
  Sex: Female

DRUGS (2)
  1. EXPAREL [Suspect]
     Active Substance: BUPIVACAINE
     Dosage: 20ML WITH 40 ML OF 0.25% BUPIVACAINE
     Route: 065
  2. BUPIVACAINE [Suspect]
     Active Substance: BUPIVACAINE
     Dosage: 40ML WITH 20 ML OF LB
     Route: 065

REACTIONS (3)
  - Seizure [Unknown]
  - Local anaesthetic systemic toxicity [Unknown]
  - Off label use [Unknown]
